FAERS Safety Report 6331982-9 (Version None)
Quarter: 2009Q3

REPORT INFORMATION
  Report Type: 
  Country: None (occurrence: None)
  Receive Date: 20090828
  Receipt Date: 20090819
  Transmission Date: 20100115
  Serious: Yes (Hospitalization)
  Sender: FDA-Public Use
  Company Number: US-BIOGENIDEC-2009BI022879

PATIENT
  Age: 56 Year
  Sex: Female

DRUGS (3)
  1. AVONEX [Suspect]
     Indication: MULTIPLE SCLEROSIS
     Route: 030
     Dates: start: 20010330
  2. AVONEX [Suspect]
     Route: 030
  3. SOLU-MEDROL [Concomitant]

REACTIONS (8)
  - ABDOMINAL PAIN [None]
  - BLOOD HOMOCYSTEINE INCREASED [None]
  - BLOOD POTASSIUM DECREASED [None]
  - CONSTIPATION [None]
  - LIGAMENT DISORDER [None]
  - OESOPHAGEAL DILATATION [None]
  - VITAMIN D DECREASED [None]
  - WEIGHT INCREASED [None]
